FAERS Safety Report 7621492-0 (Version None)
Quarter: 2011Q3

REPORT INFORMATION
  Report Type: 
  Country: None (occurrence: None)
  Receive Date: 20110719
  Receipt Date: 20110715
  Transmission Date: 20111222
  Serious: No
  Sender: FDA-Public Use
  Company Number: US-B.I. PHARMACEUTICALS,INC./RIDGEFIELD-2011-BP-01378BP

PATIENT
  Sex: Male

DRUGS (3)
  1. DYSTOLIC [Concomitant]
  2. PRADAXA [Suspect]
     Indication: ATRIAL FIBRILLATION
     Dosage: 300 MG
     Route: 048
     Dates: start: 20101222, end: 20110226
  3. ATACAND [Concomitant]
     Indication: ATRIAL FIBRILLATION

REACTIONS (5)
  - DIARRHOEA [None]
  - DYSPEPSIA [None]
  - ODYNOPHAGIA [None]
  - NAUSEA [None]
  - RECTAL DISCHARGE [None]
